FAERS Safety Report 19287333 (Version 1)
Quarter: 2021Q2

REPORT INFORMATION
  Report Type: Spontaneous
  Country: GB (occurrence: GB)
  Receive Date: 20210522
  Receipt Date: 20210522
  Transmission Date: 20210717
  Serious: Yes (Other)
  Sender: FDA-Public Use
  Company Number: GB-AUROBINDO-AUR-APL-2021-020923

PATIENT
  Age: 76 Year
  Sex: Male
  Weight: 67 kg

DRUGS (12)
  1. ATORVASTATIN [Concomitant]
     Active Substance: ATORVASTATIN
     Indication: ILL-DEFINED DISORDER
     Dosage: UNK UNK, DAILY (TAKE ONE)
     Route: 065
     Dates: start: 20201029
  2. PREGABALIN. [Concomitant]
     Active Substance: PREGABALIN
     Indication: ILL-DEFINED DISORDER
     Dosage: UNK UNK, TWO TIMES A DAY (TAKE ONE)
     Route: 065
     Dates: start: 20210427
  3. TAMSULOSIN [Suspect]
     Active Substance: TAMSULOSIN
     Indication: ILL-DEFINED DISORDER
     Dosage: UNK
     Route: 065
     Dates: start: 20210513
  4. PROPRANOLOL [Concomitant]
     Active Substance: PROPRANOLOL HYDROCHLORIDE
     Indication: ILL-DEFINED DISORDER
     Dosage: UNK (TAKE TWO PM)
     Route: 065
     Dates: start: 20201029
  5. RAMIPRIL. [Concomitant]
     Active Substance: RAMIPRIL
     Indication: ILL-DEFINED DISORDER
     Dosage: UNK UNK, DAILY (TAKE ONE)
     Route: 065
     Dates: start: 20201029
  6. TAMSULOSIN HYDROCHLORIDE. [Concomitant]
     Active Substance: TAMSULOSIN HYDROCHLORIDE
     Indication: ILL-DEFINED DISORDER
     Dosage: UNK UNK, DAILY (TAKE ONE)
     Route: 065
     Dates: start: 20210311, end: 20210414
  7. CO?AMOXICLAV [Concomitant]
     Active Substance: AMOXICILLIN\CLAVULANATE POTASSIUM
     Indication: ILL-DEFINED DISORDER
     Dosage: UNK UNK, 3 TIMES A DAY (TAKE ONE)
     Route: 065
     Dates: start: 20210408, end: 20210415
  8. GLICLAZIDE [Concomitant]
     Active Substance: GLICLAZIDE
     Indication: ILL-DEFINED DISORDER
     Dosage: UNK UNK, AS DIRECTED
     Route: 065
     Dates: start: 20201029
  9. FEXOFENADINE [Concomitant]
     Active Substance: FEXOFENADINE HYDROCHLORIDE
     Indication: ILL-DEFINED DISORDER
     Dosage: UNK UNK, DAILY (TAKE ONE)
     Route: 065
     Dates: start: 20210414
  10. METFORMIN [Concomitant]
     Active Substance: METFORMIN HYDROCHLORIDE
     Indication: ILL-DEFINED DISORDER
     Dosage: UNK UNK, TWO TIMES A DAY (TAKE TWO)
     Route: 065
     Dates: start: 20201029
  11. SILDENAFIL. [Concomitant]
     Active Substance: SILDENAFIL
     Indication: ILL-DEFINED DISORDER
     Dosage: UNK UNK, AS DIRECTED
     Route: 065
     Dates: start: 20190426
  12. SITAGLIPTIN [Concomitant]
     Active Substance: SITAGLIPTIN
     Indication: ILL-DEFINED DISORDER
     Dosage: UNK UNK, DAILY (TAKE ONE)
     Route: 065
     Dates: start: 20201029

REACTIONS (1)
  - Adverse drug reaction [Recovered/Resolved]

NARRATIVE: CASE EVENT DATE: 20210513
